FAERS Safety Report 18077554 (Version 1)
Quarter: 2020Q3

REPORT INFORMATION
  Report Type: Spontaneous
  Country: FR (occurrence: FR)
  Receive Date: 20200727
  Receipt Date: 20200727
  Transmission Date: 20201103
  Serious: Yes (Other)
  Sender: FDA-Public Use
  Company Number: FR-PFIZER INC-2020282954

PATIENT
  Age: 19 Year
  Sex: Male

DRUGS (5)
  1. PROMETHAZINE [Suspect]
     Active Substance: PROMETHAZINE HYDROCHLORIDE
     Dosage: UNK (UNSPECIFIED)
     Route: 048
     Dates: start: 2016
  2. CANNABIS [Suspect]
     Active Substance: CANNABIS SATIVA SUBSP. INDICA TOP
     Dosage: UNK (UNSPECIFIED)
     Route: 055
     Dates: start: 2013
  3. CODEINE [Suspect]
     Active Substance: CODEINE
     Dosage: UNK (UNSPECIFIED)
     Route: 048
     Dates: start: 2016
  4. ALPRAZOLAM. [Suspect]
     Active Substance: ALPRAZOLAM
     Dosage: UNK (UNSPECIFIED)
     Route: 048
     Dates: start: 2016
  5. TRAMADOL. [Suspect]
     Active Substance: TRAMADOL
     Dosage: UNK (UNSPECIFIED)
     Route: 048
     Dates: start: 2016

REACTIONS (2)
  - Drug abuse [Not Recovered/Not Resolved]
  - Monofilament pressure perception test abnormal [Recovered/Resolved]

NARRATIVE: CASE EVENT DATE: 2013
